FAERS Safety Report 7479098-2 (Version None)
Quarter: 2011Q2

REPORT INFORMATION
  Report Type: 
  Country: None (occurrence: None)
  Receive Date: 20110513
  Receipt Date: 20110503
  Transmission Date: 20111010
  Serious: Yes (Hospitalization, Other)
  Sender: FDA-Public Use
  Company Number: US-MERCK-0911USA02195

PATIENT
  Age: 53 Year
  Sex: Female
  Weight: 65 kg

DRUGS (1)
  1. FOSAMAX [Suspect]
     Indication: OSTEOPOROSIS
     Route: 048
     Dates: start: 20031031, end: 20070226

REACTIONS (38)
  - STRESS FRACTURE [None]
  - DENTAL CARIES [None]
  - HERPES ZOSTER [None]
  - ABSCESS [None]
  - CERVICAL DYSPLASIA [None]
  - DEPRESSION [None]
  - MUSCULOSKELETAL PAIN [None]
  - OSTEOMYELITIS [None]
  - ARTERIAL DISORDER [None]
  - CANDIDIASIS [None]
  - BACK PAIN [None]
  - GASTRIC MUCOSAL HYPERTROPHY [None]
  - GASTROINTESTINAL DISORDER [None]
  - TOOTHACHE [None]
  - SOMNOLENCE [None]
  - SKIN DISORDER [None]
  - DYSPEPSIA [None]
  - SLEEP APNOEA SYNDROME [None]
  - FATIGUE [None]
  - HYPERTENSION [None]
  - INTERVERTEBRAL DISC DEGENERATION [None]
  - UPPER RESPIRATORY TRACT INFECTION [None]
  - GASTROOESOPHAGEAL REFLUX DISEASE [None]
  - LUNG DISORDER [None]
  - OSTEONECROSIS OF JAW [None]
  - BRONCHITIS CHRONIC [None]
  - CELLULITIS [None]
  - DIVERTICULITIS [None]
  - TOOTH ABSCESS [None]
  - HIATUS HERNIA [None]
  - INCREASED TENDENCY TO BRUISE [None]
  - PAIN IN JAW [None]
  - ARTHRITIS [None]
  - MOUTH HAEMORRHAGE [None]
  - CHOLELITHIASIS [None]
  - TOOTH DISORDER [None]
  - RESTLESS LEGS SYNDROME [None]
  - HUMAN PAPILLOMA VIRUS TEST POSITIVE [None]
